FAERS Safety Report 23108945 (Version 1)
Quarter: 2023Q4

REPORT INFORMATION
  Report Type: Report from Study
  Country: EG (occurrence: EG)
  Receive Date: 20231026
  Receipt Date: 20231026
  Transmission Date: 20240110
  Serious: Yes (Other)
  Sender: FDA-Public Use
  Company Number: EG-SA-2023SA327527

PATIENT

DRUGS (2)
  1. CLOPIDOGREL BISULFATE [Suspect]
     Active Substance: CLOPIDOGREL BISULFATE
     Dosage: 600 MG (LOADING DOSE)
  2. ASPIRIN [Concomitant]
     Active Substance: ASPIRIN
     Dosage: 300 MG

REACTIONS (1)
  - Vascular stent thrombosis [Unknown]
